FAERS Safety Report 24342619 (Version 1)
Quarter: 2024Q3

REPORT INFORMATION
  Report Type: Spontaneous
  Country: IN (occurrence: IN)
  Receive Date: 20240920
  Receipt Date: 20240920
  Transmission Date: 20241017
  Serious: Yes (Life-Threatening, Hospitalization)
  Sender: ACCORD
  Company Number: IN-Accord-446693

PATIENT
  Age: 5 Decade
  Sex: Male

DRUGS (2)
  1. METHOTREXATE [Suspect]
     Active Substance: METHOTREXATE
     Indication: Psoriasis
  2. METHOTREXATE [Suspect]
     Active Substance: METHOTREXATE
     Indication: Psoriasis
     Dosage: TAKEN TWO DOSES OF TABLET METHOTREXATE

REACTIONS (6)
  - Mouth ulceration [Recovered/Resolved]
  - Incorrect dose administered [Unknown]
  - Dosage not adjusted [Unknown]
  - Bone marrow failure [Recovered/Resolved]
  - Pancytopenia [Recovered/Resolved]
  - Mucocutaneous ulceration [Recovered/Resolved]
